FAERS Safety Report 5689435-7 (Version None)
Quarter: 2008Q1

REPORT INFORMATION
  Report Type: 
  Country: None (occurrence: None)
  Receive Date: 20080331
  Receipt Date: 20080319
  Transmission Date: 20080703
  Serious: Yes (Other)
  Sender: FDA-Public Use
  Company Number: FR-PFIZER INC-2008019515

PATIENT
  Sex: Female
  Weight: 65 kg

DRUGS (6)
  1. CHAMPIX [Suspect]
     Indication: SMOKING CESSATION THERAPY
  2. LIPANOR [Concomitant]
     Route: 048
  3. LEVONORGESTREL AND ETHINYL ESTRADIOL [Concomitant]
     Route: 048
  4. ACETAMINOPHEN [Concomitant]
     Route: 048
     Dates: start: 20080108, end: 20080112
  5. CLARITHROMYCIN [Concomitant]
     Indication: BRONCHITIS
  6. ACTIFED [Concomitant]
     Route: 048
     Dates: start: 20071228, end: 20080101

REACTIONS (4)
  - DRY SKIN [None]
  - ERYTHEMA [None]
  - OEDEMA [None]
  - PARAESTHESIA ORAL [None]
